FAERS Safety Report 8121970 (Version 3)
Quarter: 2013Q2

REPORT INFORMATION
  Report Type: Spontaneous
  Country: US (occurrence: US)
  Receive Date: 20110906
  Receipt Date: 20130614
  Transmission Date: 20140414
  Serious: Yes (Hospitalization)
  Sender: FDA-Public Use
  Company Number: US-ASTRAZENECA-2011SE51111

PATIENT
  Age: 52 Year
  Sex: Female
  Weight: 56.7 kg

DRUGS (7)
  1. SEROQUEL XR [Suspect]
     Indication: BIPOLAR I DISORDER
     Route: 048
  2. SEROQUEL XR [Suspect]
     Indication: MANIA
     Route: 048
  3. SEROQUEL XR [Suspect]
     Indication: BIPOLAR I DISORDER
     Route: 048
  4. SEROQUEL XR [Suspect]
     Indication: MANIA
     Route: 048
  5. NEXIUM [Suspect]
     Route: 048
  6. AMBIEN CR [Concomitant]
     Route: 048
     Dates: start: 2005
  7. XANAX [Concomitant]
     Indication: ANXIETY
     Route: 048
     Dates: start: 201010

REACTIONS (21)
  - Memory impairment [Unknown]
  - Blood potassium decreased [Unknown]
  - Blood magnesium decreased [Unknown]
  - Blood sodium decreased [Unknown]
  - Vitamin B12 decreased [Unknown]
  - Confusional state [Unknown]
  - Mania [Unknown]
  - Psychotic disorder [Unknown]
  - Insomnia [Unknown]
  - Blood cholesterol increased [Unknown]
  - Blood pressure increased [Unknown]
  - Electrocardiogram Q wave abnormal [Unknown]
  - Adverse event [Unknown]
  - Nausea [Unknown]
  - Gastrooesophageal reflux disease [Unknown]
  - Heart rate increased [Unknown]
  - Palpitations [Unknown]
  - Dizziness [Unknown]
  - Weight increased [Unknown]
  - Vomiting [Unknown]
  - Drug dose omission [Unknown]
